FAERS Safety Report 8278151-3 (Version None)
Quarter: 2012Q2

REPORT INFORMATION
  Report Type: 
  Country: None (occurrence: None)
  Receive Date: 20120412
  Receipt Date: 20110923
  Transmission Date: 20120825
  Serious: No
  Sender: FDA-Public Use
  Company Number: US-ASTRAZENECA-2011SE57706

PATIENT
  Sex: Female

DRUGS (2)
  1. ARIMIDEX [Concomitant]
  2. NEXIUM [Suspect]
     Route: 048

REACTIONS (3)
  - CONSTIPATION [None]
  - HOT FLUSH [None]
  - ANXIETY [None]
